FAERS Safety Report 7218239-9 (Version None)
Quarter: 2011Q1

REPORT INFORMATION
  Report Type: 
  Country: None (occurrence: None)
  Receive Date: 20110110
  Receipt Date: 20110106
  Transmission Date: 20110831
  Serious: Yes (Hospitalization)
  Sender: FDA-Public Use
  Company Number: FR-PFIZER INC-2011003424

PATIENT
  Age: 89 Year
  Sex: Female

DRUGS (12)
  1. DOMPERIDONE [Concomitant]
  2. KARDEGIC [Concomitant]
     Dosage: 160 MG, UNK
     Route: 048
  3. CARBOSYLANE [Concomitant]
  4. ARICEPT [Suspect]
     Dosage: UNK
     Dates: start: 20100101, end: 20100505
  5. GINKOR [Concomitant]
  6. CERIS [Concomitant]
     Dosage: 20 MG, UNK
  7. ARICEPT [Suspect]
     Indication: DEMENTIA ALZHEIMER'S TYPE
     Dosage: 1 DF, 1X/DAY
     Route: 048
     Dates: start: 20090101, end: 20091221
  8. ALDACTONE [Suspect]
     Dosage: UNK
     Dates: end: 20100505
  9. ALDACTONE [Suspect]
     Dosage: 25 MG, 1X/DAY
     Route: 048
     Dates: end: 20091201
  10. ZOPICLONE [Concomitant]
  11. BETAHISTINE HYDROCHLORIDE [Concomitant]
  12. PARIET [Concomitant]
     Dosage: 20 MG, UNK

REACTIONS (2)
  - CONFUSIONAL STATE [None]
  - MALAISE [None]
